FAERS Safety Report 6970466-1 (Version None)
Quarter: 2010Q3

REPORT INFORMATION
  Report Type: 
  Country: None (occurrence: None)
  Receive Date: 20100908
  Receipt Date: 20100831
  Transmission Date: 20110219
  Serious: Yes (Hospitalization)
  Sender: FDA-Public Use
  Company Number: JP-ROCHE-716660

PATIENT
  Sex: Female

DRUGS (22)
  1. ACTEMRA [Suspect]
     Indication: JUVENILE ARTHRITIS
     Route: 041
     Dates: start: 20090206, end: 20090206
  2. ACTEMRA [Suspect]
     Route: 041
     Dates: start: 20090306, end: 20090306
  3. ACTEMRA [Suspect]
     Route: 041
     Dates: start: 20090403, end: 20090403
  4. ACTEMRA [Suspect]
     Route: 041
     Dates: start: 20090507, end: 20090507
  5. ACTEMRA [Suspect]
     Route: 041
     Dates: start: 20090603, end: 20090603
  6. ACTEMRA [Suspect]
     Route: 041
     Dates: start: 20090701, end: 20090701
  7. ACTEMRA [Suspect]
     Route: 041
     Dates: start: 20090729, end: 20100714
  8. METHOTREXATE [Concomitant]
     Route: 048
  9. AZULFIDINE [Concomitant]
     Route: 048
     Dates: end: 20090510
  10. AZULFIDINE [Concomitant]
     Route: 048
     Dates: start: 20090511, end: 20090610
  11. PREDONINE [Concomitant]
     Dosage: DOSE FORM: PERORAL AGENT.
     Route: 048
     Dates: start: 20081112, end: 20081230
  12. PREDONINE [Concomitant]
     Dosage: DOSE FORM: PERORAL AGENT.
     Route: 048
     Dates: start: 20081231, end: 20090211
  13. PREDONINE [Concomitant]
     Dosage: DOSE FORM: PERORAL AGENT.
     Route: 048
     Dates: start: 20090212, end: 20090216
  14. PREDONINE [Concomitant]
     Dosage: DOSE FORM: PERORAL AGENT.
     Route: 048
     Dates: start: 20090217, end: 20100517
  15. PREDONINE [Concomitant]
     Route: 048
     Dates: start: 20100518, end: 20100615
  16. PREDONINE [Concomitant]
     Route: 048
     Dates: start: 20100616
  17. IBRUPROFEN [Concomitant]
     Dosage: DOSE FORM: PERORAL AGENT.
     Route: 048
     Dates: end: 20100118
  18. IBRUPROFEN [Concomitant]
     Route: 048
     Dates: start: 20100119, end: 20100216
  19. IBRUPROFEN [Concomitant]
     Route: 048
     Dates: start: 20100217, end: 20100425
  20. ALFACALCIDOL [Concomitant]
     Dosage: DOSE FORM: PERORAL AGENT, DRUG NAME REPORTED AS TOYOFEROL.
     Route: 048
  21. LEUCOVORIN CALCIUM [Concomitant]
     Route: 048
  22. ANTIHISTAMINES [Concomitant]
     Route: 048
     Dates: start: 20090824

REACTIONS (4)
  - BLOOD PRESSURE DECREASED [None]
  - CHEST DISCOMFORT [None]
  - INJECTION SITE WARMTH [None]
  - PYREXIA [None]
